FAERS Safety Report 19113094 (Version 1)
Quarter: 2021Q2

REPORT INFORMATION
  Report Type: Spontaneous
  Country: ID (occurrence: ID)
  Receive Date: 20210409
  Receipt Date: 20210409
  Transmission Date: 20210717
  Serious: Yes (Other)
  Sender: FDA-Public Use
  Company Number: ID-ALKEM LABORATORIES LIMITED-ID-ALKEM-2021-01802

PATIENT
  Age: 40 Year
  Sex: Female

DRUGS (1)
  1. MYCOPHENOLATE MOFETIL. [Suspect]
     Active Substance: MYCOPHENOLATE MOFETIL
     Indication: PSORIASIS
     Dosage: 2 GRAM, QD
     Route: 065

REACTIONS (2)
  - Drug-induced liver injury [Unknown]
  - Jaundice [Unknown]
